FAERS Safety Report 7934279-6 (Version None)
Quarter: 2011Q4

REPORT INFORMATION
  Report Type: 
  Country: None (occurrence: None)
  Receive Date: 20111122
  Receipt Date: 20110824
  Transmission Date: 20120403
  Serious: No
  Sender: FDA-Public Use
  Company Number: US-BAYER-2011-080687

PATIENT
  Age: 89 Year
  Sex: Female
  Weight: 61.224 kg

DRUGS (3)
  1. ALEVE (CAPLET) [Suspect]
     Indication: ARTHRITIS
     Dosage: 2 DF, QD
     Dates: start: 20110601
  2. TOPROL-XL [Concomitant]
  3. MULTI-VITAMINS [Concomitant]

REACTIONS (1)
  - NO ADVERSE EVENT [None]
